FAERS Safety Report 23785056 (Version 2)
Quarter: 2024Q2

REPORT INFORMATION
  Report Type: Spontaneous
  Country: FR (occurrence: FR)
  Receive Date: 20240425
  Receipt Date: 20240520
  Transmission Date: 20240715
  Serious: Yes (Life-Threatening, Hospitalization)
  Sender: FDA-Public Use
  Company Number: FR-TEVA-VS-3186696

PATIENT
  Age: 19 Year
  Sex: Female

DRUGS (6)
  1. VENLAFAXINE [Suspect]
     Active Substance: VENLAFAXINE HYDROCHLORIDE
     Indication: Suicide attempt
     Dosage: 11.25 G (50 PILLS OF VENLAFAXINE 225MG). FORMULATION: PILLS
     Route: 048
  2. PANTOPRAZOLE [Concomitant]
     Active Substance: PANTOPRAZOLE
     Indication: Product used for unknown indication
     Route: 065
  3. NOREPINEPHRINE [Suspect]
     Active Substance: NOREPINEPHRINE\NOREPINEPHRINE BITARTRATE
     Indication: Hypotension
     Route: 065
  4. SUFENTANIL [Concomitant]
     Active Substance: SUFENTANIL
     Indication: Sedation
     Route: 065
  5. MIDAZOLAM [Concomitant]
     Active Substance: MIDAZOLAM
     Indication: Sedation
     Route: 065
  6. AMIODARONE [Suspect]
     Active Substance: AMIODARONE
     Indication: Arrhythmia prophylaxis
     Route: 042

REACTIONS (16)
  - Intentional overdose [Unknown]
  - Sinus tachycardia [Recovering/Resolving]
  - Ventricular tachycardia [Recovering/Resolving]
  - Cardiomyopathy [Recovering/Resolving]
  - Drug level increased [Unknown]
  - Hypotension [Recovering/Resolving]
  - Somnolence [Unknown]
  - Toxicity to various agents [Unknown]
  - Cardio-respiratory arrest [Recovering/Resolving]
  - Drug interaction [Unknown]
  - Seizure [Unknown]
  - Drug ineffective [Unknown]
  - Stress cardiomyopathy [Recovering/Resolving]
  - Ventricular dysfunction [Recovering/Resolving]
  - Mydriasis [Unknown]
  - Coma [Unknown]
